FAERS Safety Report 17098194 (Version 1)
Quarter: 2019Q4

REPORT INFORMATION
  Report Type: Spontaneous
  Country: US (occurrence: US)
  Receive Date: 20191105
  Receipt Date: 20191105
  Transmission Date: 20200122
  Serious: No
  Sender: FDA-Public Use
  Company Number: None

PATIENT
  Age: 65 Year
  Sex: Male
  Weight: 93 kg

DRUGS (1)
  1. CISPLATIN. [Suspect]
     Active Substance: CISPLATIN
     Dates: end: 20160323

REACTIONS (4)
  - Dental caries [None]
  - Tonsil cancer [None]
  - Tooth loss [None]
  - Exposed bone in jaw [None]

NARRATIVE: CASE EVENT DATE: 20191031
